FAERS Safety Report 6536460-X (Version None)
Quarter: 2010Q1

REPORT INFORMATION
  Report Type: 
  Country: None (occurrence: None)
  Receive Date: 20100113
  Receipt Date: 20100112
  Transmission Date: 20100710
  Serious: Yes (Death, Hospitalization)
  Sender: FDA-Public Use
  Company Number: ES-MERCK-1001ESP00007

PATIENT
  Sex: Female

DRUGS (1)
  1. INVANZ [Suspect]
     Indication: DIVERTICULITIS
     Route: 042
     Dates: start: 20090101, end: 20090101

REACTIONS (2)
  - ADVERSE EVENT [None]
  - CONFUSIONAL STATE [None]
